FAERS Safety Report 7427945-2 (Version None)
Quarter: 2011Q2

REPORT INFORMATION
  Report Type: 
  Country: None (occurrence: None)
  Receive Date: 20110421
  Receipt Date: 20110413
  Transmission Date: 20111010
  Serious: Yes (Hospitalization)
  Sender: FDA-Public Use
  Company Number: US-ASTELLAS-2011US001592

PATIENT
  Age: 44 Year
  Sex: Male

DRUGS (6)
  1. PROGRAF [Suspect]
     Indication: RENAL TRANSPLANT
     Dosage: UNK
     Route: 065
  2. MYCOPHENOLATE MOFETIL [Suspect]
     Indication: RENAL TRANSPLANT
     Dosage: UNK
     Route: 065
  3. PREDNISONE [Suspect]
     Indication: RENAL TRANSPLANT
     Dosage: UNK
     Route: 065
  4. THYMOGLOBULIN [Suspect]
     Indication: RENAL TRANSPLANT
     Dosage: 3 DOSES, TOTAL 5 MG/KG
     Route: 065
  5. VALGANCICLOVIR [Concomitant]
     Indication: PROPHYLAXIS
     Dosage: 450 MG, UID/QD
     Route: 065
  6. TRIMETHOPRIM + SULFAMETHOXAZOLE [Concomitant]
     Indication: PROPHYLAXIS
     Dosage: UNK
     Route: 065

REACTIONS (5)
  - DRUG INEFFECTIVE [None]
  - TUBULOINTERSTITIAL NEPHRITIS [None]
  - KIDNEY TRANSPLANT REJECTION [None]
  - GRAFT LOSS [None]
  - ADENOVIRUS INFECTION [None]
